FAERS Safety Report 6543892-2 (Version None)
Quarter: 2010Q1

REPORT INFORMATION
  Report Type: 
  Country: None (occurrence: None)
  Receive Date: 20100120
  Receipt Date: 20100113
  Transmission Date: 20100710
  Serious: Yes (Other)
  Sender: FDA-Public Use
  Company Number: AR-NOVOPROD-288085

PATIENT
  Age: 11 Year
  Sex: Male
  Weight: 23 kg

DRUGS (2)
  1. NOVOSEVEN [Suspect]
     Indication: HAEMOPHILIA A WITH ANTI FACTOR VIII
     Dosage: 200 UG/KG, SINGLE
     Dates: start: 20030326, end: 20030327
  2. NOVOSEVEN [Suspect]
     Dosage: 120 UG/KG 16 TIMES

REACTIONS (4)
  - COMPARTMENT SYNDROME [None]
  - DISEASE RECURRENCE [None]
  - DRUG INEFFECTIVE [None]
  - HAEMORRHAGE [None]
